FAERS Safety Report 10232702 (Version 1)
Quarter: 2014Q2

REPORT INFORMATION
  Report Type: Spontaneous
  Country: US (occurrence: None)
  Receive Date: 20140611
  Receipt Date: 20140611
  Transmission Date: 20141212
  Serious: Yes (Disabling)
  Sender: FDA-Public Use
  Company Number: None

PATIENT
  Age: 68 Year
  Sex: Female
  Weight: 57.61 kg

DRUGS (1)
  1. LEVAQUIN [Suspect]
     Indication: PNEUMONIA
     Dosage: 750 5 PILLS, ONCE DAILY, TAKEN BY MOUTH
     Route: 048
     Dates: start: 20140502, end: 20140506

REACTIONS (7)
  - Rotator cuff syndrome [None]
  - Dry eye [None]
  - Neuropathy peripheral [None]
  - Pain [None]
  - Abasia [None]
  - Tendonitis [None]
  - Heart rate irregular [None]
